FAERS Safety Report 19684969 (Version 1)
Quarter: 2021Q3

REPORT INFORMATION
  Report Type: Spontaneous
  Country: US (occurrence: US)
  Receive Date: 20210811
  Receipt Date: 20210811
  Transmission Date: 20211014
  Serious: No
  Sender: FDA-Public Use
  Company Number: None

PATIENT
  Sex: Male
  Weight: 77.4 kg

DRUGS (8)
  1. XARELTO [Concomitant]
     Active Substance: RIVAROXABAN
  2. LEVOTHYROXINE. [Concomitant]
     Active Substance: LEVOTHYROXINE
  3. FUROSEMIDE. [Concomitant]
     Active Substance: FUROSEMIDE
  4. PREDNISONE. [Concomitant]
     Active Substance: PREDNISONE
  5. CYCLOPHOSPHAMIDE CAPSULES [Suspect]
     Active Substance: CYCLOPHOSPHAMIDE
     Indication: NEOPLASM MALIGNANT
     Route: 048
  6. ATENOLOL. [Concomitant]
     Active Substance: ATENOLOL
  7. DOFETILIDE. [Concomitant]
     Active Substance: DOFETILIDE
  8. FOLIC ACID. [Concomitant]
     Active Substance: FOLIC ACID

REACTIONS (3)
  - Splenic artery embolisation [None]
  - Cardiac disorder [None]
  - Renal failure [None]
